FAERS Safety Report 10492106 (Version 1)
Quarter: 2014Q4

REPORT INFORMATION
  Report Type: Spontaneous
  Country: US (occurrence: US)
  Receive Date: 20141002
  Receipt Date: 20141002
  Transmission Date: 20150528
  Serious: No
  Sender: FDA-Public Use
  Company Number: US-GLAXOSMITHKLINE-A1065418A

PATIENT
  Age: 57 Year
  Sex: Male
  Weight: 91.8 kg

DRUGS (7)
  1. ADVAIR HFA [Suspect]
     Active Substance: FLUTICASONE PROPIONATE\SALMETEROL XINAFOATE
     Indication: EMPHYSEMA
     Dosage: 1PUFF TWICE PER DAY
     Route: 055
     Dates: start: 201312
  2. LIPITOR [Concomitant]
     Active Substance: ATORVASTATIN CALCIUM
  3. TRICOR [Concomitant]
     Active Substance: FENOFIBRATE
  4. METOPROLOL [Concomitant]
     Active Substance: METOPROLOL
  5. AVODART [Concomitant]
     Active Substance: DUTASTERIDE
  6. ASPIRIN. [Concomitant]
     Active Substance: ASPIRIN
  7. LOSARTAN POTASSIUM. [Concomitant]
     Active Substance: LOSARTAN POTASSIUM

REACTIONS (5)
  - Oral pain [Not Recovered/Not Resolved]
  - Oral disorder [Recovering/Resolving]
  - Product quality issue [Not Recovered/Not Resolved]
  - Pharyngeal oedema [Recovering/Resolving]
  - Mouth haemorrhage [Not Recovered/Not Resolved]

NARRATIVE: CASE EVENT DATE: 20140228
